FAERS Safety Report 23204254 (Version 1)
Quarter: 2023Q4

REPORT INFORMATION
  Report Type: Report from Study
  Country: IT (occurrence: IT)
  Receive Date: 20231120
  Receipt Date: 20231120
  Transmission Date: 20240110
  Serious: Yes (Death, Life-Threatening, Hospitalization)
  Sender: FDA-Public Use
  Company Number: None

PATIENT
  Age: 90 Year
  Sex: Male

DRUGS (11)
  1. RIVAROXABAN [Suspect]
     Active Substance: RIVAROXABAN
     Indication: Atrial fibrillation
     Dosage: 15 MG, QD
     Route: 048
  2. ALFUZOSINA [ALFUZOSIN] [Concomitant]
     Indication: Benign prostatic hyperplasia
     Dosage: 10 MG
     Route: 048
  3. DIGOXIN [Concomitant]
     Active Substance: DIGOXIN
     Indication: Atrial fibrillation
     Dosage: 0.06 MG
     Route: 048
  4. OMEPRAZOLE [Concomitant]
     Active Substance: OMEPRAZOLE
     Indication: Prophylaxis against gastrointestinal ulcer
     Dosage: 20 MG
     Route: 048
  5. SOTALOL HYDROCHLORIDE [Concomitant]
     Active Substance: SOTALOL HYDROCHLORIDE
     Indication: Atrial fibrillation
     Dosage: 80 MG, Q8HR
     Route: 048
  6. ENALAPRIL IDROCLOROTIAZIDE EG [Concomitant]
     Indication: Hypertension
     Dosage: 20 MG
     Route: 048
  7. ENALAPRIL IDROCLOROTIAZIDE EG [Concomitant]
     Indication: Hypertension
     Dosage: 12.5 MG
     Route: 048
  8. LEVOTHYROXINE SODIUM [Concomitant]
     Active Substance: LEVOTHYROXINE SODIUM
     Indication: Hypothyroidism
     Dosage: 125 UG
     Route: 048
  9. LEVOTHYROXINE SODIUM [Concomitant]
     Active Substance: LEVOTHYROXINE SODIUM
     Indication: Hypothyroidism
     Dosage: 75 UG
     Route: 048
  10. PIROXICAM [Concomitant]
     Active Substance: PIROXICAM
     Indication: Asthma
     Dosage: 200 UG
  11. PIROXICAM [Concomitant]
     Active Substance: PIROXICAM
     Indication: Asthma
     Dosage: 6 UG

REACTIONS (5)
  - Cerebral haemorrhage [Fatal]
  - Malaise [Fatal]
  - Speech disorder [Fatal]
  - Movement disorder [Fatal]
  - Asthenia [Fatal]

NARRATIVE: CASE EVENT DATE: 20230517
